FAERS Safety Report 7512351-2 (Version None)
Quarter: 2011Q2

REPORT INFORMATION
  Report Type: 
  Country: None (occurrence: None)
  Receive Date: 20110520
  Receipt Date: 20100617
  Transmission Date: 20111010
  Serious: Yes (Hospitalization)
  Sender: FDA-Public Use
  Company Number: 623161

PATIENT
  Age: 35 Year
  Sex: Female

DRUGS (3)
  1. FENTANYL CITRATE [Suspect]
     Indication: PRODUCT USED FOR UNKNOWN INDICATION
     Dosage: 50 ?G MICROGRAM(S)
     Dates: start: 20100111, end: 20100111
  2. THIOPENTAL SODIUM [Suspect]
     Indication: PRODUCT USED FOR UNKNOWN INDICATION
     Dosage: 825 MG MILLIGRAM(S)
     Dates: start: 20100111, end: 20100111
  3. MIDAZOLAM HCL [Suspect]
     Indication: PRODUCT USED FOR UNKNOWN INDICATION
     Dosage: 3 MG MILLIGRAM(S)
     Dates: start: 20100111, end: 20100111

REACTIONS (2)
  - MYOCLONUS [None]
  - LOSS OF CONSCIOUSNESS [None]
